FAERS Safety Report 8002312-1 (Version None)
Quarter: 2011Q4

REPORT INFORMATION
  Report Type: 
  Country: None (occurrence: None)
  Receive Date: 20111219
  Receipt Date: 20111206
  Transmission Date: 20120403
  Serious: Yes (Life-Threatening, Hospitalization)
  Sender: FDA-Public Use
  Company Number: 2011HGS-002744

PATIENT
  Age: 53 Year
  Sex: Female

DRUGS (12)
  1. LUMIGAN (BIMATROPROST) [Concomitant]
  2. PENTOXIFYLLINE [Concomitant]
  3. NORVASC [Concomitant]
  4. CALCIUM CARBONATE [Concomitant]
  5. MYFORTIC [Suspect]
     Indication: VASCULITIS
     Dosage: 720 MG, 1 IN 1 D, ORAL
     Route: 048
     Dates: start: 20080102, end: 20111103
  6. PLAQUENIL [Concomitant]
  7. ASAPHEN (ACETYLSALICYLIC ACID) [Concomitant]
  8. INNOHEP [Concomitant]
  9. BELIMUMAB [Suspect]
     Indication: SYSTEMIC LUPUS ERYTHEMATOSUS
     Dosage: 10 MG/KG, 1 IN 28 D, INTRAVENOUS
     Route: 042
     Dates: start: 20090831
  10. DOCUSATE (DOCUSATE) [Concomitant]
  11. NITRO-DUR [Concomitant]
  12. NITROLYCERIN (GLYCERYL TRINITRATE) [Concomitant]

REACTIONS (20)
  - UPPER RESPIRATORY TRACT INFECTION [None]
  - RHINOVIRUS INFECTION [None]
  - DIARRHOEA [None]
  - BLOOD POTASSIUM DECREASED [None]
  - CANDIDIASIS [None]
  - ACUTE RESPIRATORY DISTRESS SYNDROME [None]
  - BLOOD CHLORIDE INCREASED [None]
  - ANION GAP DECREASED [None]
  - ATELECTASIS [None]
  - BLOOD BICARBONATE DECREASED [None]
  - PROTHROMBIN TIME PROLONGED [None]
  - CLOSTRIDIUM TEST POSITIVE [None]
  - HYPERGAMMAGLOBULINAEMIA [None]
  - PULMONARY HAEMORRHAGE [None]
  - BLOOD PRESSURE SYSTOLIC DECREASED [None]
  - INTERNATIONAL NORMALISED RATIO INCREASED [None]
  - TRICUSPID VALVE INCOMPETENCE [None]
  - PULMONARY ARTERIAL PRESSURE INCREASED [None]
  - LOBAR PNEUMONIA [None]
  - ANTIPHOSPHOLIPID SYNDROME [None]
